FAERS Safety Report 5822784-8 (Version None)
Quarter: 2008Q3

REPORT INFORMATION
  Report Type: 
  Country: None (occurrence: None)
  Receive Date: 20080725
  Receipt Date: 20071002
  Transmission Date: 20090109
  Serious: No
  Sender: FDA-Public Use
  Company Number: US-AMGEN-KDL243781

PATIENT
  Sex: Male

DRUGS (9)
  1. EPOGEN [Suspect]
     Indication: RENAL FAILURE CHRONIC
     Route: 058
     Dates: start: 20060101
  2. AGGRENOX [Concomitant]
  3. LEVOTHYROXINE SODIUM [Concomitant]
  4. COREG [Concomitant]
  5. SIMVASTATIN [Concomitant]
  6. FOLIC ACID [Concomitant]
  7. PREVACID [Concomitant]
  8. OMEPRAL [Concomitant]
  9. UNSPECIFIED MEDICATION [Concomitant]

REACTIONS (7)
  - BLOOD PHOSPHORUS INCREASED [None]
  - DYSPHAGIA [None]
  - FATIGUE [None]
  - HIATUS HERNIA [None]
  - INFECTION [None]
  - MIDDLE INSOMNIA [None]
  - PRURITUS [None]
